FAERS Safety Report 8874546 (Version 1)
Quarter: 2012Q4

REPORT INFORMATION
  Report Type: 
  Country: US (occurrence: US)
  Receive Date: 20121030
  Receipt Date: 20121030
  Transmission Date: 20130627
  Serious: No
  Sender: FDA-Public Use
  Company Number: US-PFIZER INC-2012267696

PATIENT
  Age: 46 Year
  Sex: Female
  Weight: 61.22 kg

DRUGS (2)
  1. RELPAX [Suspect]
     Indication: HEADACHE
     Dosage: 40 mg, as needed
     Dates: start: 201202, end: 201206
  2. IBUPROFEN [Concomitant]
     Indication: HEADACHE
     Dosage: UNK, as needed
     Dates: start: 201201

REACTIONS (2)
  - White blood cell count decreased [Unknown]
  - Alopecia [Not Recovered/Not Resolved]
